FAERS Safety Report 8250856-X (Version None)
Quarter: 2012Q2

REPORT INFORMATION
  Report Type: 
  Country: None (occurrence: None)
  Receive Date: 20120402
  Receipt Date: 20120328
  Transmission Date: 20120825
  Serious: Yes (Other)
  Sender: FDA-Public Use
  Company Number: PHHY2012CA018412

PATIENT
  Sex: Female

DRUGS (1)
  1. GILENYA [Suspect]
     Indication: RELAPSING-REMITTING MULTIPLE SCLEROSIS
     Dosage: 0.5 MG, DAILY
     Route: 048
     Dates: start: 20111209

REACTIONS (5)
  - CELLULITIS [None]
  - VISION BLURRED [None]
  - ERYTHEMA [None]
  - OEDEMA PERIPHERAL [None]
  - BLOOD PRESSURE ABNORMAL [None]
